FAERS Safety Report 5738263-2 (Version None)
Quarter: 2008Q2

REPORT INFORMATION
  Report Type: 
  Country: None (occurrence: None)
  Receive Date: 20080514
  Receipt Date: 20080502
  Transmission Date: 20081010
  Serious: Yes (Hospitalization)
  Sender: FDA-Public Use
  Company Number: US-PFIZER INC-2008039080

PATIENT
  Sex: Female

DRUGS (7)
  1. LYRICA [Suspect]
  2. DESYREL [Suspect]
  3. LORTAB [Suspect]
  4. SOMA [Suspect]
  5. PAXIL [Suspect]
  6. HYZAAR [Suspect]
  7. VICODIN [Concomitant]

REACTIONS (3)
  - DEHYDRATION [None]
  - DEMENTIA [None]
  - DYSPNOEA [None]
